FAERS Safety Report 9804740 (Version 2)
Quarter: 2014Q1

REPORT INFORMATION
  Report Type: Spontaneous
  Country: US (occurrence: US)
  Receive Date: 20140108
  Receipt Date: 20140109
  Transmission Date: 20141002
  Serious: Yes (Death)
  Sender: FDA-Public Use
  Company Number: US-PFIZER INC-2014005357

PATIENT
  Age: 38 Year
  Sex: Male

DRUGS (3)
  1. OXYCODONE HYDROCHLORIDE [Suspect]
  2. HYDROMORPHONE [Suspect]
  3. PROMETHAZINE [Suspect]

REACTIONS (1)
  - Drug abuse [Fatal]
